FAERS Safety Report 13565503 (Version 1)
Quarter: 2017Q2

REPORT INFORMATION
  Report Type: Spontaneous
  Country: US (occurrence: US)
  Receive Date: 20170519
  Receipt Date: 20170519
  Transmission Date: 20170830
  Serious: Yes (Life-Threatening, Other)
  Sender: FDA-Public Use
  Company Number: US-FRESENIUS KABI-FK201704004

PATIENT
  Age: 29 Year
  Sex: Female

DRUGS (2)
  1. OXYTOCIN INJECTION, USP [Suspect]
     Active Substance: OXYTOCIN
     Indication: LABOUR INDUCTION
     Route: 040
     Dates: start: 20170508, end: 20170508
  2. OXYTOCIN INJECTION, USP [Suspect]
     Active Substance: OXYTOCIN
     Dates: start: 20170508

REACTIONS (3)
  - Drug ineffective [Recovered/Resolved]
  - Postpartum haemorrhage [Recovered/Resolved]
  - Maternal exposure during pregnancy [Recovered/Resolved]

NARRATIVE: CASE EVENT DATE: 20170508
